FAERS Safety Report 7597028-X (Version None)
Quarter: 2011Q3

REPORT INFORMATION
  Report Type: 
  Country: None (occurrence: None)
  Receive Date: 20110708
  Receipt Date: 20110706
  Transmission Date: 20111222
  Serious: Yes (Hospitalization)
  Sender: FDA-Public Use
  Company Number: FR-PFIZER INC-2011151213

PATIENT
  Age: 42 Year
  Sex: Female

DRUGS (4)
  1. FLUOXETINE [Suspect]
     Indication: MULTIPLE SCLEROSIS
     Dosage: UNK
     Route: 048
  2. LYRICA [Suspect]
     Indication: MULTIPLE SCLEROSIS
     Route: 048
  3. TYSABRI [Suspect]
     Indication: MULTIPLE SCLEROSIS
     Dosage: 300 MG, MONTHLY
     Route: 041
     Dates: start: 20080601, end: 20100501
  4. AVONEX [Suspect]
     Indication: MULTIPLE SCLEROSIS
     Dosage: UNK
     Route: 030
     Dates: start: 20020101, end: 20070101

REACTIONS (2)
  - PYREXIA [None]
  - LUNG ADENOCARCINOMA [None]
